FAERS Safety Report 5940688-7 (Version None)
Quarter: 2008Q4

REPORT INFORMATION
  Report Type: 
  Country: None (occurrence: None)
  Receive Date: 20081103
  Receipt Date: 20081103
  Transmission Date: 20090506
  Serious: Yes (Hospitalization)
  Sender: FDA-Public Use
  Company Number: None

PATIENT
  Sex: Female
  Weight: 72.6 kg

DRUGS (1)
  1. TEMOZOLOMIDE [Suspect]
     Dosage: 3675 MG

REACTIONS (1)
  - LYMPHOCYTE COUNT DECREASED [None]
